FAERS Safety Report 25330925 (Version 1)
Quarter: 2025Q2

REPORT INFORMATION
  Report Type: Spontaneous
  Country: US (occurrence: None)
  Receive Date: 20250516
  Receipt Date: 20250516
  Transmission Date: 20250717
  Serious: Yes (Disabling)
  Sender: FDA-CTU
  Company Number: None

PATIENT
  Age: 69 Year
  Sex: Female
  Weight: 54.45 kg

DRUGS (6)
  1. BESIVANCE [Suspect]
     Active Substance: BESIFLOXACIN
     Indication: Eye operation
     Dosage: 1 DROP(S) 4 TIMES A DY OPHTHALMIC
     Route: 047
  2. BESIVANCE [Suspect]
     Active Substance: BESIFLOXACIN
     Indication: Prophylaxis
  3. PREDNISOLONE [Suspect]
     Active Substance: PREDNISOLONE
  4. PROLENSA [Suspect]
     Active Substance: BROMFENAC SODIUM
  5. CIPRO [Suspect]
     Active Substance: CIPROFLOXACIN HYDROCHLORIDE
  6. TIMOLOL MALEATE [Concomitant]
     Active Substance: TIMOLOL MALEATE

REACTIONS (13)
  - Tendonitis [None]
  - Tendonitis [None]
  - Diplopia [None]
  - Eye pain [None]
  - Arrhythmia [None]
  - Brain fog [None]
  - Eye movement disorder [None]
  - Impaired driving ability [None]
  - Asthenopia [None]
  - Gait disturbance [None]
  - Muscle spasms [None]
  - Bone disorder [None]
  - Pain [None]

NARRATIVE: CASE EVENT DATE: 20240210
